FAERS Safety Report 16306098 (Version 3)
Quarter: 2021Q2

REPORT INFORMATION
  Report Type: Report from Study
  Country: DE (occurrence: DE)
  Receive Date: 20190513
  Receipt Date: 20210610
  Transmission Date: 20210716
  Serious: Yes (Hospitalization, Other)
  Sender: FDA-Public Use
  Company Number: DE-JNJFOC-20190508398

PATIENT
  Age: 80 Year
  Sex: Female
  Weight: 75 kg

DRUGS (41)
  1. DOXORUBICIN HYDROCHLORIDE. [Suspect]
     Active Substance: DOXORUBICIN HYDROCHLORIDE
     Route: 041
     Dates: start: 20180220, end: 20180220
  2. RITUXIMAB. [Suspect]
     Active Substance: RITUXIMAB
     Dosage: (INFUSION RATE 400 (ML/MIN FROM 9:20 TO 10:30)
     Route: 041
     Dates: start: 20180220, end: 20180220
  3. RITUXIMAB. [Suspect]
     Active Substance: RITUXIMAB
     Dosage: (INFUSION RATE 450 ML/MIN FROM 8:50 TO 12:00)
     Route: 041
     Dates: start: 20180410, end: 20180410
  4. ONDANSETRON [Concomitant]
     Active Substance: ONDANSETRON
     Indication: PROPHYLAXIS
     Route: 042
     Dates: start: 20180201, end: 20180716
  5. UROMITEXAN [Concomitant]
     Active Substance: MESNA
     Route: 048
     Dates: start: 20180201, end: 20180716
  6. DOXORUBICIN HYDROCHLORIDE. [Suspect]
     Active Substance: DOXORUBICIN HYDROCHLORIDE
     Route: 041
     Dates: start: 20180604, end: 20180604
  7. VINCRISTINE [Suspect]
     Active Substance: VINCRISTINE
     Dosage: 1 MG, (INFUSION RATE 1 ML/MIN FROM 12:40 TO 13:00)
     Route: 041
     Dates: start: 20180220, end: 20180220
  8. PREDNISONE. [Suspect]
     Active Substance: PREDNISONE
     Route: 048
     Dates: start: 20180220, end: 20180227
  9. RITUXIMAB. [Suspect]
     Active Substance: RITUXIMAB
     Dosage: (INFUSION RATE 400 (ML/MIN FROM 9:10 TO 11:15)
     Route: 041
     Dates: start: 20180604, end: 20180604
  10. PARACETAMOL [Concomitant]
     Active Substance: ACETAMINOPHEN
     Indication: PROPHYLAXIS
     Route: 048
     Dates: start: 20180201
  11. PREDNISONE. [Suspect]
     Active Substance: PREDNISONE
     Route: 048
     Dates: start: 20180604, end: 20180611
  12. DOXORUBICIN HYDROCHLORIDE. [Suspect]
     Active Substance: DOXORUBICIN HYDROCHLORIDE
     Indication: DIFFUSE LARGE B-CELL LYMPHOMA
     Route: 041
     Dates: start: 20180201, end: 20180201
  13. VINCRISTINE [Suspect]
     Active Substance: VINCRISTINE
     Indication: DIFFUSE LARGE B-CELL LYMPHOMA
     Dosage: 1 MG, (INFUSION RATE 0.5 ML/MIN FROM 14:00 TO 14:04)
     Route: 041
     Dates: start: 20180201, end: 20180201
  14. CYCLOPHOSPHAMIDE. [Suspect]
     Active Substance: CYCLOPHOSPHAMIDE
     Indication: DIFFUSE LARGE B-CELL LYMPHOMA
     Dosage: (INFUSION RATE 80.75 ML/MIN FROM 12:30 TO 13:30)
     Route: 041
     Dates: start: 20180201, end: 20180201
  15. CYCLOPHOSPHAMIDE. [Suspect]
     Active Substance: CYCLOPHOSPHAMIDE
     Dosage: INFUSION RATE 510 ML/MIN FROM 12:30 TO 13:30)
     Route: 041
     Dates: start: 20180313, end: 20180313
  16. CYCLOPHOSPHAMIDE. [Suspect]
     Active Substance: CYCLOPHOSPHAMIDE
     Dosage: (INFUSION RATE 500 ML/MIN FROM 11:45 TO 12:15)
     Route: 041
     Dates: start: 20180514, end: 20180514
  17. TRIMETHOPRIM SULFAMETHOXAZOLE [Concomitant]
     Active Substance: SULFAMETHOXAZOLE\TRIMETHOPRIM
     Indication: PROPHYLAXIS
     Route: 048
     Dates: start: 20180201
  18. UROMITEXAN [Concomitant]
     Active Substance: MESNA
     Indication: PROPHYLAXIS
     Route: 048
     Dates: start: 20180201
  19. DOXORUBICIN HYDROCHLORIDE. [Suspect]
     Active Substance: DOXORUBICIN HYDROCHLORIDE
     Route: 041
     Dates: start: 20180313, end: 20180313
  20. DOXORUBICIN HYDROCHLORIDE. [Suspect]
     Active Substance: DOXORUBICIN HYDROCHLORIDE
     Route: 041
     Dates: start: 20180514, end: 20180514
  21. PREDNISONE. [Suspect]
     Active Substance: PREDNISONE
     Route: 048
     Dates: start: 20180313, end: 20180320
  22. PREDNISONE. [Suspect]
     Active Substance: PREDNISONE
     Route: 048
     Dates: start: 20180410, end: 20180417
  23. RITUXIMAB. [Suspect]
     Active Substance: RITUXIMAB
     Dosage: (INFUSION RATE 500 ML/MIN FROM 9:04 TO 11:50)
     Route: 041
     Dates: start: 20180625, end: 20180625
  24. SOLU DECORTIN [Concomitant]
     Active Substance: PREDNISOLONE SODIUM SUCCINATE
     Indication: PROPHYLAXIS
     Route: 042
     Dates: start: 20180201, end: 20180201
  25. DICLOFENAC [Concomitant]
     Active Substance: DICLOFENAC
     Indication: PROPHYLAXIS
     Route: 048
     Dates: start: 20180108
  26. PREDNISONE. [Suspect]
     Active Substance: PREDNISONE
     Indication: DIFFUSE LARGE B-CELL LYMPHOMA
     Route: 048
     Dates: start: 20180201, end: 20180208
  27. RITUXIMAB. [Suspect]
     Active Substance: RITUXIMAB
     Dosage: (INFUSION RATE 400 ML/MIN FROM 9:20 TO 12:30)
     Route: 041
     Dates: start: 20180313, end: 20180313
  28. RITUXIMAB. [Suspect]
     Active Substance: RITUXIMAB
     Dosage: (INFUSION RATE 500 ML/MIN FROM 9:00 TO 11:10)
     Route: 041
     Dates: start: 20180716
  29. CYCLOPHOSPHAMIDE. [Suspect]
     Active Substance: CYCLOPHOSPHAMIDE
     Dosage: (INFUSION RATE 500 ML/MIN FROM 12:00 TO 13:00)
     Route: 041
     Dates: start: 20180410, end: 20180410
  30. CLEMASTINE [Concomitant]
     Active Substance: CLEMASTINE
     Indication: PROPHYLAXIS
     Route: 042
     Dates: start: 20180201, end: 20180716
  31. DOXORUBICIN HYDROCHLORIDE. [Suspect]
     Active Substance: DOXORUBICIN HYDROCHLORIDE
     Route: 041
     Dates: start: 20180410, end: 20180410
  32. VINCRISTINE [Suspect]
     Active Substance: VINCRISTINE
     Route: 041
     Dates: start: 20180313, end: 20180313
  33. RITUXIMAB. [Suspect]
     Active Substance: RITUXIMAB
     Indication: DIFFUSE LARGE B-CELL LYMPHOMA
     Dosage: (INFUSION RATE 7 ML/MIN FROM 09:30?12:30)
     Route: 041
     Dates: start: 20180201, end: 20180201
  34. RITUXIMAB. [Suspect]
     Active Substance: RITUXIMAB
     Dosage: (INFUSION RATE 400 (ML/MIN FROM 9:15 TO 10:45)
     Route: 041
     Dates: start: 20180514, end: 20180514
  35. CYCLOPHOSPHAMIDE. [Suspect]
     Active Substance: CYCLOPHOSPHAMIDE
     Dosage: (INFUSION RATE 510 ML/MIN FROM 10:30 TO 11:30)
     Route: 041
     Dates: start: 20180220, end: 20180220
  36. LONQUEX [Concomitant]
     Active Substance: LIPEGFILGRASTIM
     Indication: PROPHYLAXIS
     Route: 058
     Dates: start: 20180205, end: 20180716
  37. PREDNISONE. [Suspect]
     Active Substance: PREDNISONE
     Route: 048
     Dates: start: 20180514, end: 20180521
  38. CYCLOPHOSPHAMIDE. [Suspect]
     Active Substance: CYCLOPHOSPHAMIDE
     Dosage: INFUSION RATE 500 ML/MIN FROM 11:15 TO 12:15)
     Route: 041
     Dates: start: 20180604, end: 20180604
  39. MCP [Concomitant]
     Active Substance: METOCLOPRAMIDE HYDROCHLORIDE
     Indication: PROPHYLAXIS
     Route: 048
     Dates: start: 20180201
  40. BISOPROLOL [Concomitant]
     Active Substance: BISOPROLOL
     Indication: HYPERTENSION
     Route: 048
     Dates: start: 20180108
  41. HCT [Concomitant]
     Active Substance: HYDROCHLOROTHIAZIDE
     Indication: HYPERTENSION
     Route: 048
     Dates: start: 20180108

REACTIONS (6)
  - Peripheral vascular disorder [Recovered/Resolved]
  - General physical health deterioration [Unknown]
  - Diarrhoea [Recovered/Resolved]
  - Off label use [Unknown]
  - Product use in unapproved indication [Unknown]
  - Neuropathy peripheral [Unknown]

NARRATIVE: CASE EVENT DATE: 20180313
